FAERS Safety Report 7645330-5 (Version None)
Quarter: 2011Q3

REPORT INFORMATION
  Report Type: 
  Country: None (occurrence: None)
  Receive Date: 20110729
  Receipt Date: 20110729
  Transmission Date: 20111222
  Serious: Yes (Hospitalization)
  Sender: FDA-Public Use
  Company Number: BR-ABBOTT-10P-020-0675355-00

PATIENT
  Sex: Female
  Weight: 35 kg

DRUGS (10)
  1. CIPROFLOXACIN [Concomitant]
     Indication: CROHN'S DISEASE
     Route: 048
  2. PHENYTOIN [Concomitant]
     Indication: CONVULSION PROPHYLAXIS
     Route: 048
  3. PHENOBARBITAL TAB [Concomitant]
     Indication: CONVULSION PROPHYLAXIS
     Route: 048
  4. SULFERROL [Concomitant]
     Indication: ANAEMIA
  5. TRAMADOL HCL [Concomitant]
     Indication: PAIN
     Route: 048
  6. CARBAMAZEPINE [Concomitant]
     Indication: PRODUCT USED FOR UNKNOWN INDICATION
     Route: 048
  7. CARBAMAZEPINE [Concomitant]
     Indication: CONVULSION PROPHYLAXIS
     Route: 048
  8. HUMIRA [Suspect]
     Route: 058
  9. HUMIRA [Suspect]
     Indication: CROHN'S DISEASE
     Dosage: INDUCTION DOSE
     Dates: start: 20091116
  10. HUMIRA [Suspect]
     Dosage: INDUCTION DOSE
     Route: 058

REACTIONS (18)
  - LIP INJURY [None]
  - BONE DISORDER [None]
  - CROHN'S DISEASE [None]
  - CHEILITIS [None]
  - MUCOSAL EROSION [None]
  - CONSTIPATION [None]
  - DIARRHOEA [None]
  - LIP PRURITUS [None]
  - LEISHMANIASIS [None]
  - UNEVALUABLE EVENT [None]
  - NASAL OBSTRUCTION [None]
  - RHINITIS [None]
  - SWELLING FACE [None]
  - MALAISE [None]
  - CUTANEOUS LEISHMANIASIS [None]
  - SELF INJURIOUS BEHAVIOUR [None]
  - ABDOMINAL PAIN UPPER [None]
  - FACE INJURY [None]
